FAERS Safety Report 8189825-7 (Version None)
Quarter: 2012Q1

REPORT INFORMATION
  Report Type: 
  Country: None (occurrence: None)
  Receive Date: 20120307
  Receipt Date: 20110826
  Transmission Date: 20120608
  Serious: No
  Sender: FDA-Public Use
  Company Number: US-GLAXOSMITHKLINE-A0942524A

PATIENT
  Age: 63 Year
  Sex: Female

DRUGS (14)
  1. PRAVACHOL [Concomitant]
  2. NEXIUM [Concomitant]
  3. ALLOPURINOL [Concomitant]
  4. UNKNOWN MEDICATION [Concomitant]
  5. HYDROCHLOROTHIAZIDE [Concomitant]
  6. DIAVAN [Concomitant]
  7. POTASSIUM CITRATE [Concomitant]
  8. NORVASC [Concomitant]
  9. LASIX [Concomitant]
  10. VIBRAMYCIN [Concomitant]
  11. METOPROLOL TARTRATE [Concomitant]
  12. REQUIP [Suspect]
     Indication: RESTLESS LEGS SYNDROME
     Dosage: 3MG AS REQUIRED
     Route: 048
     Dates: start: 20080801
  13. ZOLOFT [Concomitant]
  14. ADVAIR DISKUS 100/50 [Concomitant]

REACTIONS (3)
  - PAIN IN EXTREMITY [None]
  - DYSKINESIA [None]
  - DRUG INEFFECTIVE [None]
